FAERS Safety Report 15955901 (Version 2)
Quarter: 2019Q2

REPORT INFORMATION
  Report Type: Report from Study
  Country: JP (occurrence: JP)
  Receive Date: 20190213
  Receipt Date: 20190605
  Transmission Date: 20190711
  Serious: Yes (Hospitalization)
  Sender: FDA-Public Use
  Company Number: JP-ELI_LILLY_AND_COMPANY-JP201901003656

PATIENT
  Age: 73 Year
  Sex: Male

DRUGS (3)
  1. EURODIN [ESTAZOLAM] [Concomitant]
     Indication: INSOMNIA
  2. LYRICA [Concomitant]
     Active Substance: PREGABALIN
     Indication: LUMBAR SPINAL STENOSIS
  3. BARICITINIB [Suspect]
     Active Substance: BARICITINIB
     Indication: RHEUMATOID ARTHRITIS
     Dosage: 4 MG, DAILY
     Route: 048
     Dates: start: 20180323, end: 20181217

REACTIONS (2)
  - Pneumonia [Recovering/Resolving]
  - Chronic obstructive pulmonary disease [Recovered/Resolved]

NARRATIVE: CASE EVENT DATE: 20181215
